FAERS Safety Report 4757261-9 (Version None)
Quarter: 2005Q3

REPORT INFORMATION
  Report Type: 
  Country: None (occurrence: None)
  Receive Date: 20050829
  Receipt Date: 20050811
  Transmission Date: 20060218
  Serious: Yes (Hospitalization, Other)
  Sender: FDA-Public Use
  Company Number: 2005-0008526

PATIENT
  Age: 45 Year
  Sex: Female

DRUGS (11)
  1. VIREAD [Suspect]
     Dosage: 300 MG, 1 IN 1 D, ORAL
     Route: 048
     Dates: end: 20050301
  2. VIREAD [Suspect]
     Dosage: 300 MG, 1 IN 1 D, ORAL
     Route: 048
     Dates: start: 20050308
  3. NORVIR [Suspect]
     Dosage: 2 DOSAGE FORMS, 1 IN 1 D, ORAL
     Route: 048
     Dates: end: 20050301
  4. NORVIR [Suspect]
     Dosage: 2 DOSAGE FORMS, 1 IN 1 D, ORAL
     Route: 048
     Dates: start: 20050308
  5. TELZIR (FOSAMPRENAVIR) [Suspect]
     Dosage: 2 DOSAGE FORMS, 1 IN 1 D, ORAL
     Route: 048
     Dates: end: 20050301
  6. ZERIT [Suspect]
     Dosage: 2 DOSAGE FORMS, 1 IN 1 D, ORAL
     Route: 048
     Dates: end: 20050301
  7. ZERIT [Suspect]
     Dosage: 2 DOSAGE FORMS, 1 IN 1 D, ORAL
     Route: 048
     Dates: start: 20050308
  8. VALPROATE SODIUM [Suspect]
     Dosage: 300 MG, 2 IN 1 D, ORAL
     Route: 048
     Dates: start: 20050308
  9. EFFEXOR [Suspect]
     Indication: DEPRESSION
     Dosage: 37.5 MG, 2 IN 1 D, ORAL
     Route: 048
     Dates: start: 20050308
  10. RETROVIR [Concomitant]
  11. ZIAGEN [Concomitant]

REACTIONS (1)
  - ANGIONEUROTIC OEDEMA [None]
